FAERS Safety Report 6783344-8 (Version None)
Quarter: 2010Q2

REPORT INFORMATION
  Report Type: 
  Country: None (occurrence: None)
  Receive Date: 20100622
  Receipt Date: 20100610
  Transmission Date: 20101027
  Serious: Yes (Hospitalization, Other)
  Sender: FDA-Public Use
  Company Number: US-SANOFI-AVENTIS-2010SA033781

PATIENT
  Age: 70 Year
  Sex: Male

DRUGS (9)
  1. MULTAQ [Suspect]
     Route: 048
     Dates: start: 20100401
  2. DIGOXIN [Concomitant]
  3. ADVAIR DISKUS 100/50 [Concomitant]
  4. SPIRIVA [Concomitant]
  5. SINGULAIR [Concomitant]
  6. NEXIUM /UNK/ [Concomitant]
  7. CARDIZEM [Concomitant]
  8. COUMADIN [Concomitant]
  9. NEURONTIN [Concomitant]

REACTIONS (3)
  - LIPASE INCREASED [None]
  - PANCREATITIS [None]
  - SALMONELLOSIS [None]
